FAERS Safety Report 11800524 (Version 3)
Quarter: 2015Q4

REPORT INFORMATION
  Report Type: Spontaneous
  Country: BR (occurrence: BR)
  Receive Date: 20151203
  Receipt Date: 20151204
  Transmission Date: 20160305
  Serious: Yes (Other)
  Sender: FDA-Public Use
  Company Number: BR-ABBVIE-15P-020-1511112-00

PATIENT

DRUGS (1)
  1. SEVORANE [Suspect]
     Active Substance: SEVOFLURANE
     Indication: PRODUCT USED FOR UNKNOWN INDICATION
     Route: 065

REACTIONS (2)
  - Unwanted awareness during anaesthesia [Unknown]
  - Product expiration date issue [Unknown]
